FAERS Safety Report 17604380 (Version 1)
Quarter: 2020Q1

REPORT INFORMATION
  Report Type: Spontaneous
  Country: US (occurrence: US)
  Receive Date: 20200329
  Receipt Date: 20200329
  Transmission Date: 20200409
  Serious: Yes (Hospitalization)
  Sender: FDA-Public Use
  Company Number: None

PATIENT
  Sex: Male
  Weight: 73.8 kg

DRUGS (8)
  1. VINCRISTINE SULFATE. [Suspect]
     Active Substance: VINCRISTINE SULFATE
     Dates: end: 20200224
  2. RITUXIMAB(MO AB C2B8 ANTI CD 20, CHIMERIC) [Suspect]
     Active Substance: RITUXIMAB
     Dates: end: 20200210
  3. CYTARABINE. [Suspect]
     Active Substance: CYTARABINE
     Indication: CHEMOTHERAPY
     Dates: end: 20200312
  4. MERCAPTOPURINE. [Suspect]
     Active Substance: MERCAPTOPURINE
     Dates: end: 20200312
  5. DEXAMETHASONE. [Suspect]
     Active Substance: DEXAMETHASONE
     Dates: end: 20200223
  6. METHOTREXATE. [Suspect]
     Active Substance: METHOTREXATE
     Dates: end: 20200203
  7. DAUNORUBICIN [Suspect]
     Active Substance: DAUNORUBICIN
     Dates: end: 20200224
  8. CYCLOPHOSPHAMIDE. [Suspect]
     Active Substance: CYCLOPHOSPHAMIDE
     Dates: end: 20200302

REACTIONS (8)
  - Platelet count decreased [None]
  - Colitis [None]
  - Respiratory rate decreased [None]
  - Enteritis [None]
  - Escherichia urinary tract infection [None]
  - White blood cell count decreased [None]
  - Febrile neutropenia [None]
  - Therapy cessation [None]

NARRATIVE: CASE EVENT DATE: 20200310
